FAERS Safety Report 10752881 (Version 1)
Quarter: 2015Q1

REPORT INFORMATION
  Report Type: Spontaneous
  Country: US (occurrence: US)
  Receive Date: 20150130
  Receipt Date: 20150130
  Transmission Date: 20150721
  Serious: Yes (Other)
  Sender: FDA-Public Use
  Company Number: US-NOVOPROD-436504

PATIENT
  Sex: Female

DRUGS (1)
  1. LEVEMIR [Suspect]
     Active Substance: INSULIN DETEMIR
     Indication: DIABETES MELLITUS
     Dosage: 23 U, UNK
     Route: 058
     Dates: start: 20140225

REACTIONS (1)
  - Lens disorder [Recovered/Resolved]

NARRATIVE: CASE EVENT DATE: 20140226
